FAERS Safety Report 5067899-X (Version None)
Quarter: 2006Q3

REPORT INFORMATION
  Report Type: 
  Country: None (occurrence: None)
  Receive Date: 20060802
  Receipt Date: 20060724
  Transmission Date: 20061208
  Serious: Yes (Other)
  Sender: FDA-Public Use
  Company Number: CA-JNJFOC-20060704816

PATIENT
  Sex: Female
  Weight: 97 kg

DRUGS (6)
  1. REMICADE [Suspect]
     Route: 042
  2. REMICADE [Suspect]
     Indication: DRUG USE FOR UNKNOWN INDICATION
     Dosage: 6 INFUSIONS ON UNKNOWN DATES.
     Route: 042
  3. BENADRYL [Concomitant]
     Indication: PREMEDICATION
     Route: 048
  4. PREDNISONE [Concomitant]
     Indication: PREMEDICATION
     Route: 048
  5. METHOTREXATE [Concomitant]
  6. IMODIUM [Concomitant]

REACTIONS (7)
  - ABDOMINAL PAIN [None]
  - DIARRHOEA [None]
  - FISTULA [None]
  - MUCOUS STOOLS [None]
  - PARAESTHESIA [None]
  - SINUSITIS [None]
  - ULCER [None]
